FAERS Safety Report 5261693-2 (Version None)
Quarter: 2007Q1

REPORT INFORMATION
  Report Type: 
  Country: None (occurrence: None)
  Receive Date: 20070308
  Receipt Date: 20070222
  Transmission Date: 20070707
  Serious: Yes (Other)
  Sender: FDA-Public Use
  Company Number: 224353

PATIENT
  Age: 60 Year
  Sex: Male
  Weight: 84.4 kg

DRUGS (14)
  1. RAPTIVA [Suspect]
     Indication: PSORIASIS
     Dosage: 120 MG, 1/WEEK, SUBCUTANEOUS
     Route: 058
     Dates: start: 20050525, end: 20060414
  2. CYCLOSPORINE [Concomitant]
  3. PUVA (PHOTOTHERAPY, PSORALEN) [Concomitant]
  4. OXSORALEN (METHOXSALEN) [Concomitant]
  5. UVA THERAPY (PHOTOTHERAPY UVA) [Concomitant]
  6. LIPITOR [Concomitant]
  7. NIASPAN ER (NIACIN) [Concomitant]
  8. ZYRTEC [Concomitant]
  9. ZOLOFT [Concomitant]
  10. ASPIRIN [Concomitant]
  11. VITAMIN B (VITAMIN B NOS) [Concomitant]
  12. ASCORBIC ACID [Concomitant]
  13. VITAMIN E [Concomitant]
  14. FISH OIL (FISH OIL) [Concomitant]

REACTIONS (5)
  - ANAEMIA [None]
  - DEHYDRATION [None]
  - PERIPHERAL T-CELL LYMPHOMA UNSPECIFIED [None]
  - SINUS DISORDER [None]
  - SYNCOPE [None]
